FAERS Safety Report 15142551 (Version 3)
Quarter: 2018Q3

REPORT INFORMATION
  Report Type: Spontaneous
  Country: CA (occurrence: CA)
  Receive Date: 20180713
  Receipt Date: 20180928
  Transmission Date: 20181010
  Serious: Yes (Other)
  Sender: FDA-Public Use
  Company Number: CA-CELLTRION INC.-2018CA019323

PATIENT

DRUGS (14)
  1. INFLECTRA [Suspect]
     Active Substance: INFLIXIMAB-DYYB
     Indication: COLITIS ULCERATIVE
     Dosage: 430 MG, CYCLIC (EVERY 0, 2, 6 WEEKS THEN EVERY 8 WEEKS
     Route: 042
     Dates: start: 20180308
  2. PREDNISONE. [Concomitant]
     Active Substance: PREDNISONE
     Dosage: 40 MG
     Route: 048
  3. CALCIUM [Concomitant]
     Active Substance: CALCIUM
     Dosage: UNK UNK, DAILY
     Route: 048
  4. CORTIMENT                          /00028601/ [Concomitant]
     Active Substance: HYDROCORTISONE
  5. INFLECTRA [Suspect]
     Active Substance: INFLIXIMAB-DYYB
     Dosage: 430 MG, CYCLIC (EVERY 0, 2, 6 WEEKS THEN EVERY 8 WEEKS
     Route: 042
     Dates: start: 20180321
  6. INFLECTRA [Suspect]
     Active Substance: INFLIXIMAB-DYYB
     Dosage: 430 MG, CYCLIC (EVERY 0, 2, 6 WEEKS THEN EVERY 8 WEEKS
     Route: 042
     Dates: start: 20180612
  7. MEZAVANT [Concomitant]
     Active Substance: MESALAMINE
     Dosage: 4.5 MG, DAILY
     Route: 048
     Dates: start: 2015
  8. PREDNISONE. [Concomitant]
     Active Substance: PREDNISONE
     Dosage: 35 MG WEEKLY
  9. VITAMIN D                          /00107901/ [Concomitant]
     Active Substance: ERGOCALCIFEROL
     Dosage: UNK UNK, DAILY
     Route: 048
  10. INFLECTRA [Suspect]
     Active Substance: INFLIXIMAB-DYYB
     Dosage: 7.5 MG/KG, (EVERY 8 WEEKS); INTRAVENOUS
     Route: 042
     Dates: start: 20180807
  11. PREDNISONE. [Concomitant]
     Active Substance: PREDNISONE
     Dosage: 50 MG
     Route: 048
  12. IMURAN [Concomitant]
     Active Substance: AZATHIOPRINE
  13. INFLECTRA [Suspect]
     Active Substance: INFLIXIMAB-DYYB
     Dosage: 430 MG, CYCLIC (EVERY 0, 2, 6 WEEKS THEN EVERY 8 WEEKS
     Route: 042
     Dates: start: 20180612
  14. IRON                               /00023503/ [Concomitant]
     Active Substance: IRON
     Dosage: UNK UNK, DAILY
     Route: 048

REACTIONS (10)
  - Nasal congestion [Not Recovered/Not Resolved]
  - Chills [Not Recovered/Not Resolved]
  - Influenza [Unknown]
  - Lower respiratory tract infection [Unknown]
  - Condition aggravated [Unknown]
  - Cough [Not Recovered/Not Resolved]
  - Nasopharyngitis [Unknown]
  - Product use issue [Unknown]
  - Pyrexia [Not Recovered/Not Resolved]
  - Headache [Not Recovered/Not Resolved]

NARRATIVE: CASE EVENT DATE: 20180322
